FAERS Safety Report 15324307 (Version 1)
Quarter: 2018Q3

REPORT INFORMATION
  Report Type: Spontaneous
  Country: DE (occurrence: DE)
  Receive Date: 20180828
  Receipt Date: 20180828
  Transmission Date: 20181010
  Serious: Yes (Other)
  Sender: FDA-Public Use
  Company Number: DE-TEVA-2018-DE-947901

PATIENT
  Age: 52 Year
  Sex: Male

DRUGS (7)
  1. MIRTAZAPIN [Suspect]
     Active Substance: MIRTAZAPINE
     Dosage: 7.5 MILLIGRAM DAILY;
     Route: 048
     Dates: start: 20170930
  2. MIRTAZAPIN [Suspect]
     Active Substance: MIRTAZAPINE
     Route: 048
     Dates: start: 20170925, end: 20170928
  3. VENLAFAXIN [Concomitant]
     Active Substance: VENLAFAXINE HYDROCHLORIDE
     Route: 048
     Dates: end: 20170720
  4. OLANZAPINE. [Concomitant]
     Active Substance: OLANZAPINE
     Dosage: 5 MILLIGRAM DAILY; B.A.W.
     Route: 048
     Dates: start: 20170714
  5. QUILONORM RETARD [Concomitant]
     Active Substance: LITHIUM CARBONATE
     Dosage: 500 MILLIGRAM DAILY; SEIT WOCHEN ? B.A.W.
     Route: 048
  6. CEFUROXIM [Concomitant]
     Active Substance: CEFUROXIME
     Dosage: 1 GRAM DAILY;
     Dates: start: 20170914, end: 20170928
  7. VENLAFAXIN [Concomitant]
     Active Substance: VENLAFAXINE HYDROCHLORIDE
     Dosage: 187.5 MILLIGRAM DAILY; B.A.W.
     Route: 048
     Dates: start: 20170721

REACTIONS (1)
  - Restless legs syndrome [Recovered/Resolved]

NARRATIVE: CASE EVENT DATE: 20170926
